FAERS Safety Report 4910490-3 (Version None)
Quarter: 2006Q1

REPORT INFORMATION
  Report Type: 
  Country: None (occurrence: None)
  Receive Date: 20060209
  Receipt Date: 20060201
  Transmission Date: 20060701
  Serious: Yes (Hospitalization)
  Sender: FDA-Public Use
  Company Number: 2006-00468

PATIENT
  Age: 47 Year
  Sex: Male

DRUGS (2)
  1. COLCHICUM JTL LIQ [Suspect]
     Indication: GOUT
     Dosage: 20 MG, SINGLE
  2. INDOMETHACIN [Suspect]
     Indication: GOUT
     Dosage: 600 MG, SINGLE, RECTAL
     Route: 054

REACTIONS (3)
  - ACCIDENTAL OVERDOSE [None]
  - DRUG INTERACTION [None]
  - RENAL FAILURE ACUTE [None]
